FAERS Safety Report 18908592 (Version 1)
Quarter: 2021Q1

REPORT INFORMATION
  Report Type: Spontaneous
  Country: US (occurrence: US)
  Receive Date: 20210218
  Receipt Date: 20210218
  Transmission Date: 20210420
  Serious: Yes (Life-Threatening, Hospitalization, Other)
  Sender: FDA-Public Use
  Company Number: US-EMCURE PHARMACEUTICALS LTD-2021-EPL-000458

PATIENT
  Age: 76 Year
  Sex: Female

DRUGS (2)
  1. DOXYCYCLINE HYCLATE. [Suspect]
     Active Substance: DOXYCYCLINE HYCLATE
     Indication: RICKETTSIALPOX
     Dosage: 100 MILLIGRAM, BID
     Route: 048
  2. SERTRALINE [Concomitant]
     Active Substance: SERTRALINE HYDROCHLORIDE
     Indication: DEPRESSION
     Dosage: UNK

REACTIONS (4)
  - Acute kidney injury [Recovering/Resolving]
  - Disseminated intravascular coagulation [Recovered/Resolved]
  - Pancreatitis acute [Recovered/Resolved]
  - Urinary tract infection [Recovered/Resolved]
